FAERS Safety Report 14872561 (Version 1)
Quarter: 2018Q2

REPORT INFORMATION
  Report Type: Spontaneous
  Country: BE (occurrence: BE)
  Receive Date: 20180510
  Receipt Date: 20180510
  Transmission Date: 20180711
  Serious: Yes (Other)
  Sender: FDA-Public Use
  Company Number: BE-TEVA-2018-BE-889679

PATIENT
  Sex: Female

DRUGS (1)
  1. KENTERA PATCH 3.9 MG [Suspect]
     Active Substance: OXYBUTYNIN
     Indication: PRODUCT USED FOR UNKNOWN INDICATION
     Route: 062

REACTIONS (16)
  - Somnolence [Unknown]
  - Paraesthesia [None]
  - Application site pain [None]
  - Facial pain [Unknown]
  - Sedation [Unknown]
  - Sleep disorder [Unknown]
  - Dizziness [Unknown]
  - Pruritus [Unknown]
  - Application site warmth [Unknown]
  - Application site pruritus [None]
  - Urinary retention [Unknown]
  - Palpitations [Unknown]
  - Application site erythema [Unknown]
  - Muscular weakness [Unknown]
  - Headache [Unknown]
  - Loss of personal independence in daily activities [None]
